FAERS Safety Report 9412336 (Version 1)
Quarter: 2013Q3

REPORT INFORMATION
  Report Type: Spontaneous
  Country: US (occurrence: US)
  Receive Date: 20130722
  Receipt Date: 20130722
  Transmission Date: 20140515
  Serious: No
  Sender: FDA-Public Use
  Company Number: US-BAUSCH-BL-2012-000577

PATIENT
  Age: 48 Year
  Sex: Female

DRUGS (2)
  1. BRIMONIDINE TARTRATE OPHTHALMIC SOLUTION 0.2% [Suspect]
     Indication: GLAUCOMA
     Dosage: 1 DROP; 3 TIMES A DAY; OPHTHALMIC
     Route: 047
     Dates: start: 201112, end: 201204
  2. TRAVOPROST [Concomitant]
     Indication: GLAUCOMA
     Dosage: 1 DROP; AT BEDTIME; OPHTHALMIC
     Route: 047

REACTIONS (7)
  - Blood pressure decreased [Recovering/Resolving]
  - Myalgia [Recovering/Resolving]
  - Vision blurred [Recovering/Resolving]
  - Fatigue [Recovering/Resolving]
  - Hypopnoea [Recovering/Resolving]
  - Hypoaesthesia [Recovering/Resolving]
  - Arthralgia [Recovering/Resolving]
